FAERS Safety Report 8834569 (Version 1)
Quarter: 2012Q4

REPORT INFORMATION
  Report Type: 
  Country: BE (occurrence: BE)
  Receive Date: 20121010
  Receipt Date: 20121010
  Transmission Date: 20130627
  Serious: Yes (Disabling, Other)
  Sender: FDA-Public Use
  Company Number: BE-ASTRAZENECA-2012SE70545

PATIENT
  Sex: Female
  Weight: 60 kg

DRUGS (2)
  1. NEXIAM [Suspect]
     Indication: OESOPHAGITIS
     Route: 048
     Dates: start: 20110125
  2. SPASMOMEN [Concomitant]

REACTIONS (1)
  - Metrorrhagia [Recovered/Resolved]
